FAERS Safety Report 9685197 (Version 1)
Quarter: 2013Q4

REPORT INFORMATION
  Report Type: Spontaneous
  Country: GR (occurrence: GR)
  Receive Date: 20131113
  Receipt Date: 20131113
  Transmission Date: 20140711
  Serious: Yes (Other)
  Sender: FDA-Public Use
  Company Number: GR-ASTRAZENECA-2013SE81939

PATIENT
  Age: 53 Year
  Sex: Male

DRUGS (5)
  1. ROSUVASTATIN [Suspect]
     Route: 048
     Dates: start: 2013
  2. RAMIPRIL [Concomitant]
     Dates: start: 2013
  3. EPLERENONE [Concomitant]
     Dates: start: 2013
  4. FUROSEMIDE [Concomitant]
     Dates: start: 2013
  5. TICAGRELOR [Concomitant]
     Dates: start: 2013

REACTIONS (3)
  - Renal disorder [Unknown]
  - Liver disorder [Unknown]
  - Myopathy [Recovered/Resolved]
